FAERS Safety Report 24579167 (Version 2)
Quarter: 2024Q4

REPORT INFORMATION
  Report Type: Report from Study
  Country: DE (occurrence: DE)
  Receive Date: 20241105
  Receipt Date: 20241125
  Transmission Date: 20250115
  Serious: Yes (Hospitalization, Other)
  Sender: ABBVIE
  Company Number: DE-ABBVIE-5987007

PATIENT
  Sex: Female

DRUGS (7)
  1. FOSCARBIDOPA\FOSLEVODOPA [Suspect]
     Active Substance: FOSCARBIDOPA\FOSLEVODOPA
     Indication: Parkinson^s disease
     Dosage: CRN: 0,58 ML/H, CR: 0,61 ML/H, CRH: 0,64 ML/H, ED: 0,30 ML
     Route: 058
     Dates: start: 20240702
  2. AUGMENTIN [Concomitant]
     Active Substance: AMOXICILLIN\CLAVULANATE POTASSIUM
     Indication: Product used for unknown indication
     Dosage: 875/125MG
  3. CARBIDOPA AND LEVODOPA [Concomitant]
     Active Substance: CARBIDOPA\LEVODOPA
     Indication: Product used for unknown indication
     Route: 048
  4. APIXABAN [Concomitant]
     Active Substance: APIXABAN
     Indication: Product used for unknown indication
  5. Inuprofen [Concomitant]
     Indication: Product used for unknown indication
     Dosage: TIME INTERVAL: 0.33333333 DAYS
  6. Bepanthen [Concomitant]
     Indication: Product used for unknown indication
  7. Polyhexanide gel [Concomitant]
     Indication: Product used for unknown indication

REACTIONS (12)
  - Wound [Unknown]
  - Gait disturbance [Not Recovered/Not Resolved]
  - Infusion site abscess [Recovering/Resolving]
  - Infusion site haematoma [Unknown]
  - Infusion site swelling [Unknown]
  - Cellulitis [Unknown]
  - Infusion site erythema [Unknown]
  - Infusion site reaction [Unknown]
  - Skin disorder [Unknown]
  - Infusion site pain [Unknown]
  - Infusion site warmth [Unknown]
  - Procedural haemorrhage [Unknown]

NARRATIVE: CASE EVENT DATE: 20240101
